FAERS Safety Report 4416685-X (Version None)
Quarter: 2004Q3

REPORT INFORMATION
  Report Type: 
  Country: None (occurrence: None)
  Receive Date: 20040802
  Receipt Date: 20040726
  Transmission Date: 20050211
  Serious: Yes (Hospitalization)
  Sender: FDA-Public Use
  Company Number: 04P-163-0256420-00

PATIENT
  Age: 51 Year
  Sex: Male

DRUGS (8)
  1. KALETRA [Suspect]
     Indication: HIV INFECTION
     Dosage: SEE IMAGE
     Dates: start: 20030101, end: 20030101
  2. KALETRA [Suspect]
     Indication: HIV INFECTION
     Dosage: SEE IMAGE
     Dates: start: 20040101, end: 20040301
  3. RIBAVIRIN [Suspect]
     Indication: HEPATITIS C
     Dosage: PER ORAL
     Route: 048
     Dates: start: 20030101, end: 20030101
  4. PEG-INTRON [Suspect]
     Indication: HEPATITIS C
     Dosage: PER ORAL
     Route: 048
     Dates: start: 20030101, end: 20030101
  5. AMLODIPINE BESYLATE [Concomitant]
  6. HYDROCHLOROTHIAZIDE [Concomitant]
  7. TRIZIVIR [Concomitant]
  8. ZIDOVUDINE W/LAMIVUDINE [Concomitant]

REACTIONS (2)
  - CARDIAC FAILURE CONGESTIVE [None]
  - CARDIOMYOPATHY [None]
